FAERS Safety Report 8554619-7 (Version None)
Quarter: 2012Q3

REPORT INFORMATION
  Report Type: 
  Country: None (occurrence: None)
  Receive Date: 20120731
  Receipt Date: 20120723
  Transmission Date: 20120928
  Serious: Yes (Other)
  Sender: FDA-Public Use
  Company Number: CA-JNJFOC-20120712921

PATIENT
  Sex: Female

DRUGS (5)
  1. IMURAN [Concomitant]
     Route: 065
  2. NEXIUM [Concomitant]
     Route: 065
  3. PENTASA [Concomitant]
     Route: 065
  4. REMICADE [Suspect]
     Indication: CROHN'S DISEASE
     Route: 042
     Dates: start: 20100713
  5. PREDNISONE [Concomitant]
     Route: 065

REACTIONS (1)
  - COLECTOMY [None]
